FAERS Safety Report 5090578-X (Version None)
Quarter: 2006Q3

REPORT INFORMATION
  Report Type: 
  Country: None (occurrence: None)
  Receive Date: 20060828
  Receipt Date: 20060612
  Transmission Date: 20061208
  Serious: No
  Sender: FDA-Public Use
  Company Number: US-GLAXOSMITHKLINE-A0608656A

PATIENT
  Age: 36 Year
  Sex: Female

DRUGS (4)
  1. WELLBUTRIN XL [Suspect]
     Indication: DEPRESSION
     Dosage: 400MG PER DAY
     Route: 048
     Dates: start: 20040101, end: 20060501
  2. ALLEGRA-D 12 HOUR [Concomitant]
  3. DESOGEN [Concomitant]
  4. LORAZEPAM [Concomitant]

REACTIONS (1)
  - DRUG INEFFECTIVE [None]
